FAERS Safety Report 9142885 (Version 1)
Quarter: 2013Q1

REPORT INFORMATION
  Report Type: Spontaneous
  Country: US (occurrence: US)
  Receive Date: 20130306
  Receipt Date: 20130306
  Transmission Date: 20140127
  Serious: No
  Sender: FDA-Public Use
  Company Number: US-PFIZER INC-2013075527

PATIENT
  Age: 46 Year
  Sex: Female
  Weight: 54.42 kg

DRUGS (4)
  1. METHOTREXATE SODIUM [Suspect]
     Dosage: UNK
  2. TETRACYCLINE HCL [Suspect]
     Dosage: UNK
  3. PLAQUENIL [Suspect]
     Dosage: UNK
  4. BIAXIN [Suspect]
     Dosage: UNK

REACTIONS (1)
  - Drug hypersensitivity [Unknown]
